FAERS Safety Report 8333735-9 (Version None)
Quarter: 2012Q2

REPORT INFORMATION
  Report Type: 
  Country: None (occurrence: None)
  Receive Date: 20120503
  Receipt Date: 20120503
  Transmission Date: 20120825
  Serious: Yes (Other)
  Sender: FDA-Public Use
  Company Number: None

PATIENT
  Age: 29 Year
  Sex: Female
  Weight: 66 kg

DRUGS (1)
  1. BACTIVER [Suspect]
     Indication: GASTROINTESTINAL INFECTION
     Dosage: |DOSAGETEXT: 1 PILL EACH 12 HOURS||STRENGTH: SULFAMETOXANOL TRIMETROPRIMA||FREQ: 12 HOURS||ROUTE: OR
     Route: 048
     Dates: start: 20120425, end: 20120428

REACTIONS (3)
  - ABASIA [None]
  - VASCULITIS [None]
  - MALAISE [None]
